FAERS Safety Report 16339294 (Version 1)
Quarter: 2019Q2

REPORT INFORMATION
  Report Type: Other
  Country: None (occurrence: PL)
  Receive Date: 20190521
  Receipt Date: 20190521
  Transmission Date: 20190711
  Serious: Yes (Other)
  Sender: FDA-Public Use
  Company Number: PL-LABORATOIRE HRA PHARMA-2067274

PATIENT
  Age: 30 Year
  Sex: Female
  Weight: 66 kg

DRUGS (1)
  1. ELLA [Suspect]
     Active Substance: ULIPRISTAL ACETATE
     Indication: POST COITAL CONTRACEPTION
     Dates: start: 20190409, end: 20190409

REACTIONS (3)
  - Abortion spontaneous [None]
  - Unintended pregnancy [None]
  - Vaginal haemorrhage [None]

NARRATIVE: CASE EVENT DATE: 20190509
